FAERS Safety Report 5849589-6 (Version None)
Quarter: 2008Q4

REPORT INFORMATION
  Report Type: 
  Country: None (occurrence: None)
  Receive Date: 20080815
  Receipt Date: 20080805
  Transmission Date: 20090506
  Serious: Yes (Hospitalization)
  Sender: FDA-Public Use
  Company Number: OSCN-NO-0808S-0478

PATIENT
  Age: 55 Year
  Sex: Male

DRUGS (3)
  1. OMNISCAN [Suspect]
     Indication: DRUG USE FOR UNKNOWN INDICATION
     Dosage: 20 ML, SINGLE DOSE, I.V.
     Route: 042
     Dates: start: 20060210, end: 20060210
  2. OMNISCAN [Suspect]
  3. MULTIHANCE [Suspect]

REACTIONS (2)
  - KIDNEY TRANSPLANT REJECTION [None]
  - MYOFASCITIS [None]
